FAERS Safety Report 15121623 (Version 1)
Quarter: 2018Q3

REPORT INFORMATION
  Report Type: Report from Study
  Country: US (occurrence: US)
  Receive Date: 20180709
  Receipt Date: 20180709
  Transmission Date: 20181010
  Serious: Yes (Hospitalization, Other)
  Sender: FDA-Public Use
  Company Number: US-GILEAD-2018-0348494

PATIENT
  Age: 38 Year
  Sex: Male

DRUGS (2)
  1. AZTREONAM LYSINE [Suspect]
     Active Substance: AZTREONAM LYSINE
     Indication: PSEUDOMONAS INFECTION
  2. AZTREONAM LYSINE [Suspect]
     Active Substance: AZTREONAM LYSINE
     Indication: CYSTIC FIBROSIS
     Dosage: 3 TIMES DAILY FOR 28 DAYS ON, 28 DAYS OFF
     Route: 055
     Dates: start: 20120904

REACTIONS (1)
  - Lung transplant [Not Recovered/Not Resolved]

NARRATIVE: CASE EVENT DATE: 20180530
